FAERS Safety Report 22332635 (Version 2)
Quarter: 2023Q2

REPORT INFORMATION
  Report Type: Spontaneous
  Country: CN (occurrence: CN)
  Receive Date: 20230517
  Receipt Date: 20230525
  Transmission Date: 20230722
  Serious: Yes (Other)
  Sender: FDA-Public Use
  Company Number: CN-PFIZER INC-PV202300085853

PATIENT
  Age: 48 Year
  Sex: Male
  Weight: 50 kg

DRUGS (2)
  1. CYTARABINE [Suspect]
     Active Substance: CYTARABINE
     Indication: Acute promyelocytic leukaemia
     Dosage: 50 MG, 1X/DAY
     Route: 037
     Dates: start: 20230504, end: 20230504
  2. METHOTREXATE SODIUM [Suspect]
     Active Substance: METHOTREXATE SODIUM
     Indication: Acute promyelocytic leukaemia
     Dosage: 10 MG, 1X/DAY
     Route: 037
     Dates: start: 20230504, end: 20230504

REACTIONS (2)
  - Transaminases increased [Unknown]
  - Drug-induced liver injury [Unknown]

NARRATIVE: CASE EVENT DATE: 20230508
